FAERS Safety Report 9248019 (Version 1)
Quarter: 2013Q2

REPORT INFORMATION
  Report Type: Spontaneous
  Country: US (occurrence: US)
  Receive Date: 20130423
  Receipt Date: 20130423
  Transmission Date: 20140414
  Serious: No
  Sender: FDA-Public Use
  Company Number: US-PFIZER INC-2013125343

PATIENT
  Age: 50 Year
  Sex: Female
  Weight: 61.22 kg

DRUGS (1)
  1. CHANTIX [Suspect]
     Indication: SMOKING CESSATION THERAPY
     Dosage: 0.5 MG, 1X/DAY
     Route: 048
     Dates: start: 20130418

REACTIONS (7)
  - Menorrhagia [Recovered/Resolved]
  - Menstruation irregular [Unknown]
  - Cystitis [Not Recovered/Not Resolved]
  - Dysuria [Not Recovered/Not Resolved]
  - Activities of daily living impaired [Not Recovered/Not Resolved]
  - Headache [Not Recovered/Not Resolved]
  - Decreased appetite [Unknown]
